FAERS Safety Report 24898949 (Version 4)
Quarter: 2025Q1

REPORT INFORMATION
  Report Type: Report from Study
  Country: CA (occurrence: CA)
  Receive Date: 20250129
  Receipt Date: 20250331
  Transmission Date: 20250409
  Serious: Yes (Hospitalization, Other)
  Sender: TAKEDA
  Company Number: CA-TAKEDA-2025TUS006559

PATIENT
  Age: 67 Year
  Sex: Male

DRUGS (8)
  1. VEDOLIZUMAB [Suspect]
     Active Substance: VEDOLIZUMAB
     Indication: Colitis ulcerative
  2. VEDOLIZUMAB [Suspect]
     Active Substance: VEDOLIZUMAB
  3. VEDOLIZUMAB [Suspect]
     Active Substance: VEDOLIZUMAB
  4. PREDNISONE [Concomitant]
     Active Substance: PREDNISONE
  5. AMIODARONE [Concomitant]
     Active Substance: AMIODARONE
  6. METOPROLOL [Concomitant]
     Active Substance: METOPROLOL
  7. ATIVAN [Concomitant]
     Active Substance: LORAZEPAM
  8. DULOXETINE [Concomitant]
     Active Substance: DULOXETINE

REACTIONS (16)
  - Fall [Recovering/Resolving]
  - Lung neoplasm malignant [Unknown]
  - Asthenia [Recovering/Resolving]
  - Muscular weakness [Recovering/Resolving]
  - Confusional state [Not Recovered/Not Resolved]
  - Mobility decreased [Unknown]
  - Gait inability [Unknown]
  - Peripheral swelling [Recovering/Resolving]
  - Contusion [Unknown]
  - Drug ineffective [Recovering/Resolving]
  - Discouragement [Unknown]
  - Urinary incontinence [Recovering/Resolving]
  - Blister [Recovering/Resolving]
  - Malaise [Recovering/Resolving]
  - Chromaturia [Not Recovered/Not Resolved]
  - Urine odour abnormal [Not Recovered/Not Resolved]

NARRATIVE: CASE EVENT DATE: 20250129
